FAERS Safety Report 8099484 (Version 3)
Quarter: 2012Q4

REPORT INFORMATION
  Report Type: 
  Country: JP (occurrence: JP)
  Receive Date: 20110822
  Receipt Date: 20120912
  Transmission Date: 20130627
  Serious: Yes (Life-Threatening, Hospitalization, Other)
  Sender: FDA-Public Use
  Company Number: JP-GENZYME-THYM-1002167

PATIENT
  Age: 60 Year
  Sex: Male
  Weight: 68.5 kg

DRUGS (22)
  1. THYMOGLOBULINE [Suspect]
     Indication: BONE MARROW CONDITIONING REGIMEN
     Dosage: 170 mg, qd
     Route: 042
     Dates: start: 20100926, end: 20100927
  2. FLUDARA [Concomitant]
     Indication: APLASTIC ANAEMIA
     Dosage: UNK
     Route: 065
     Dates: start: 20100924, end: 20100927
  3. CYCLOPHOSPHAMIDE [Concomitant]
     Indication: PREMEDICATION
     Dosage: UNK
     Route: 065
     Dates: start: 20100924, end: 20100927
  4. METHYLPREDNISOLONE SODIUM SUCCINATE [Concomitant]
     Indication: PREMEDICATION
     Dosage: UNK
     Route: 065
     Dates: start: 20100920, end: 20100927
  5. HYDROCORTISONE SODIUM SUCCINATE [Concomitant]
     Indication: ALLERGY PROPHYLAXIS
     Dosage: UNK
     Route: 065
     Dates: start: 20100930, end: 20100930
  6. TACROLIMUS [Concomitant]
     Indication: PROPHYLAXIS AGAINST GRAFT VERSUS HOST DISEASE
     Dosage: UNK
     Route: 065
     Dates: start: 20101002, end: 20101026
  7. TACROLIMUS [Concomitant]
     Dosage: UNK
     Route: 065
     Dates: start: 20101027, end: 20101126
  8. METHOTREXATE [Concomitant]
     Indication: PROPHYLAXIS AGAINST GRAFT VERSUS HOST DISEASE
     Dosage: UNK
     Route: 065
     Dates: start: 20101001, end: 20101006
  9. CALCIUM FOLINATE [Concomitant]
     Indication: PROPHYLAXIS
     Dosage: UNK
     Route: 065
     Dates: start: 20101001, end: 20101008
  10. INSULIN ASPART [Concomitant]
     Indication: DIABETES MELLITUS
     Dosage: UNK
     Route: 065
     Dates: start: 20100926
  11. ACICLOVIR [Concomitant]
     Indication: HERPES VIRUS INFECTION
     Dosage: UNK
     Route: 065
     Dates: start: 20100926
  12. LEVOFLOXACIN [Concomitant]
     Indication: ANTIBIOTIC PROPHYLAXIS
     Dosage: UNK
     Route: 065
     Dates: start: 20100926
  13. FLUCONAZOLE [Concomitant]
     Indication: ANTIFUNGAL PROPHYLAXIS
     Dosage: UNK
     Route: 065
     Dates: start: 20100926, end: 20110226
  14. GRANISETRON HYDROCHLORIDE [Concomitant]
     Indication: PROPHYLAXIS OF NAUSEA AND VOMITING
     Dosage: UNK
     Route: 065
     Dates: start: 20100926, end: 20100926
  15. URSODEOXYCHOLIC ACID [Concomitant]
     Indication: PROPHYLAXIS
     Dosage: UNK
     Route: 065
     Dates: start: 20100926
  16. MAGNESIUM OXIDE [Concomitant]
     Indication: CONSTIPATION
     Dosage: UNK
     Route: 065
     Dates: start: 20100926, end: 20110107
  17. IBUPROFEN [Concomitant]
     Indication: PREMEDICATION
     Dosage: UNK
     Route: 065
     Dates: start: 20101201, end: 20101222
  18. HYDROCORTISONE [Concomitant]
     Indication: PROPHYLAXIS
     Dosage: UNK
     Route: 065
     Dates: start: 20101225
  19. CICLOSPORIN [Concomitant]
     Indication: PROPHYLAXIS AGAINST GRAFT VERSUS HOST DISEASE
     Dosage: UNK
     Route: 065
     Dates: start: 20110203
  20. ITRACONAZOLE [Concomitant]
     Indication: ANTIFUNGAL PROPHYLAXIS
     Dosage: UNK
     Route: 065
     Dates: start: 2002
  21. ITRACONAZOLE [Concomitant]
     Dosage: UNK
     Route: 065
     Dates: start: 20110227
  22. TOTAL BODY IRRADIATION [Concomitant]
     Indication: PRODUCT USED FOR UNKNOWN INDICATION
     Dosage: UNK
     Route: 065
     Dates: start: 20100929, end: 20100929

REACTIONS (9)
  - Febrile neutropenia [Recovered/Resolved]
  - Stem cell transplant [Unknown]
  - Acute graft versus host disease in skin [Unknown]
  - Post transplant lymphoproliferative disorder [Recovered/Resolved]
  - Neutropenia [Not Recovered/Not Resolved]
  - Stomatitis [Recovered/Resolved]
  - Cytomegalovirus viraemia [Recovered/Resolved]
  - Dizziness [Recovered/Resolved]
  - Post transplant lymphoproliferative disorder [None]
